FAERS Safety Report 9786706 (Version 2)
Quarter: 2013Q4

REPORT INFORMATION
  Report Type: Spontaneous
  Country: US (occurrence: US)
  Receive Date: 20131227
  Receipt Date: 20131227
  Transmission Date: 20140711
  Serious: Yes (Death, Other)
  Sender: FDA-Public Use
  Company Number: US-TAKEDA-2013TUS001752

PATIENT
  Sex: 0

DRUGS (3)
  1. ACTOS [Suspect]
     Indication: TYPE 2 DIABETES MELLITUS
     Dosage: 15 MG
     Dates: start: 201008, end: 201010
  2. ACTOS [Suspect]
     Dosage: 30 MG
     Dates: start: 201010, end: 201101
  3. METFORMIN [Concomitant]
     Dosage: 500 MG
     Dates: start: 201008, end: 201201

REACTIONS (1)
  - Bladder cancer [Fatal]
